FAERS Safety Report 6859527-5 (Version None)
Quarter: 2010Q3

REPORT INFORMATION
  Report Type: 
  Country: None (occurrence: None)
  Receive Date: 20100719
  Receipt Date: 20080506
  Transmission Date: 20110219
  Serious: No
  Sender: FDA-Public Use
  Company Number: US-PFIZER INC-2008021033

PATIENT
  Sex: Male
  Weight: 79.5 kg

DRUGS (7)
  1. CHANTIX [Suspect]
     Indication: SMOKING CESSATION THERAPY
     Route: 048
     Dates: start: 20080201
  2. ORAMORPH SR [Concomitant]
  3. OXYCODONE HCL [Concomitant]
  4. MELOXICAM [Concomitant]
  5. SOMA [Concomitant]
  6. ALLEGRA D 24 HOUR [Concomitant]
  7. AMBIEN [Concomitant]

REACTIONS (1)
  - ABNORMAL DREAMS [None]
